FAERS Safety Report 23660909 (Version 1)
Quarter: 2024Q1

REPORT INFORMATION
  Report Type: Report from Study
  Country: US (occurrence: US)
  Receive Date: 20240322
  Receipt Date: 20240322
  Transmission Date: 20240409
  Serious: Yes (Hospitalization)
  Sender: FDA-Public Use
  Company Number: US-ABBVIE-5685473

PATIENT
  Sex: Male

DRUGS (1)
  1. HUMIRA [Suspect]
     Active Substance: ADALIMUMAB
     Indication: Psoriasis
     Dosage: FORM STRENGTH UNITS: 40 MILLIGRAM
     Route: 058

REACTIONS (7)
  - Hypotension [Unknown]
  - Psoriasis [Not Recovered/Not Resolved]
  - Sepsis [Recovering/Resolving]
  - Tremor [Unknown]
  - Chills [Unknown]
  - Vomiting [Unknown]
  - Illness [Unknown]
